FAERS Safety Report 19717804 (Version 1)
Quarter: 2021Q3

REPORT INFORMATION
  Report Type: Spontaneous
  Country: DE (occurrence: DE)
  Receive Date: 20210819
  Receipt Date: 20210819
  Transmission Date: 20211014
  Serious: Yes (Hospitalization)
  Sender: FDA-Public Use
  Company Number: DE-ALVOGEN-2021-ALVOGEN-117342

PATIENT
  Age: 85 Year
  Sex: Female
  Weight: 74 kg

DRUGS (4)
  1. ATENOLOL. [Suspect]
     Active Substance: ATENOLOL
     Indication: PRODUCT USED FOR UNKNOWN INDICATION
     Route: 048
  2. ACETYLSALICYLIC ACID [Concomitant]
     Active Substance: ASPIRIN
     Indication: PRODUCT USED FOR UNKNOWN INDICATION
     Route: 048
  3. TRAMADOL. [Concomitant]
     Active Substance: TRAMADOL
     Indication: PRODUCT USED FOR UNKNOWN INDICATION
     Route: 048
  4. POTASSIUM IODIDE. [Concomitant]
     Active Substance: POTASSIUM IODIDE
     Indication: PRODUCT USED FOR UNKNOWN INDICATION
     Dosage: 262UG/INHAL DAILY
     Route: 048

REACTIONS (2)
  - Pain [Unknown]
  - Oedema peripheral [Unknown]
